FAERS Safety Report 6256399-7 (Version None)
Quarter: 2009Q3

REPORT INFORMATION
  Report Type: 
  Country: None (occurrence: None)
  Receive Date: 20090706
  Receipt Date: 20090626
  Transmission Date: 20100115
  Serious: Yes (Hospitalization)
  Sender: FDA-Public Use
  Company Number: FR-AMGEN-US353968

PATIENT
  Sex: Male

DRUGS (6)
  1. ENBREL [Suspect]
     Indication: ANKYLOSING SPONDYLITIS
     Route: 058
     Dates: start: 20071201
  2. NOVATREX [Suspect]
     Indication: ANKYLOSING SPONDYLITIS
     Dosage: 15 MG TOTAL WEEKLY
     Route: 048
     Dates: start: 20051001
  3. REMICADE [Suspect]
     Indication: ANKYLOSING SPONDYLITIS
     Route: 042
     Dates: start: 20060401, end: 20070901
  4. COLCHICINE [Concomitant]
     Dosage: UNKNOWN
     Dates: end: 20090101
  5. COLCHICINE [Concomitant]
     Dosage: UNKNOWN
     Dates: start: 20090301
  6. SOLUPRED [Concomitant]
     Dosage: UNKNOWN
     Route: 048

REACTIONS (1)
  - PERICARDITIS [None]
